FAERS Safety Report 16299170 (Version 5)
Quarter: 2019Q4

REPORT INFORMATION
  Report Type: Spontaneous
  Country: US (occurrence: US)
  Receive Date: 20190510
  Receipt Date: 20191025
  Transmission Date: 20200122
  Serious: Yes (Other)
  Sender: FDA-Public Use
  Company Number: US-PFIZER INC-2019198198

PATIENT
  Age: 23 Year
  Sex: Male

DRUGS (2)
  1. VANCOMYCIN HCL [Suspect]
     Active Substance: VANCOMYCIN HYDROCHLORIDE
     Indication: PERITONITIS
     Dosage: UNK
     Route: 033
  2. CEFTAZIDIME. [Concomitant]
     Active Substance: CEFTAZIDIME
     Indication: PERITONITIS
     Dosage: UNK

REACTIONS (3)
  - Noninfectious peritonitis [Recovering/Resolving]
  - Appendicitis [Recovering/Resolving]
  - Drug hypersensitivity [Recovering/Resolving]
